FAERS Safety Report 9461586 (Version 1)
Quarter: 2013Q3

REPORT INFORMATION
  Report Type: Spontaneous
  Country: FR (occurrence: FR)
  Receive Date: 20130816
  Receipt Date: 20130816
  Transmission Date: 20140515
  Serious: Yes (Hospitalization)
  Sender: FDA-Public Use
  Company Number: FR-PFIZER INC-2013236690

PATIENT
  Age: 96 Year
  Sex: Female

DRUGS (4)
  1. CORDARONE [Suspect]
     Dosage: UNK
     Route: 048
  2. SOLUPRED [Interacting]
     Dosage: UNK
     Route: 065
  3. MINISINTROM [Interacting]
     Dosage: UNK
     Route: 065
  4. PARACETAMOL [Interacting]
     Dosage: UNK
     Route: 065

REACTIONS (3)
  - Drug interaction [Recovered/Resolved]
  - Rectal haemorrhage [Recovered/Resolved]
  - International normalised ratio increased [Recovered/Resolved]
